FAERS Safety Report 19914431 (Version 1)
Quarter: 2021Q4

REPORT INFORMATION
  Report Type: Other
  Country: US (occurrence: US)
  Receive Date: 20211005
  Receipt Date: 20211005
  Transmission Date: 20220303
  Serious: Yes (Other)
  Sender: FDA-Public Use
  Company Number: US-ROCHE-2817212

PATIENT
  Age: 62 Year
  Sex: Male
  Weight: 92.62 kg

DRUGS (1)
  1. OCREVUS [Suspect]
     Active Substance: OCRELIZUMAB
     Indication: Multiple sclerosis
     Dosage: ONGOING: NO?DOT:08/AUG/2018, 12/DEC/2018, 23/JUL/2019, 18/FEB/2020, 18/SEP/2020 AND 23/APR/2021
     Route: 042
     Dates: start: 20171214, end: 202010

REACTIONS (1)
  - Prostate cancer [Not Recovered/Not Resolved]

NARRATIVE: CASE EVENT DATE: 20210101
